FAERS Safety Report 10013560 (Version 2)
Quarter: 2014Q2

REPORT INFORMATION
  Report Type: Spontaneous
  Country: DE (occurrence: DE)
  Receive Date: 20140315
  Receipt Date: 20140506
  Transmission Date: 20141212
  Serious: Yes (Other)
  Sender: FDA-Public Use
  Company Number: DE-ROCHE-1364988

PATIENT
  Age: 78 Year
  Sex: Female

DRUGS (4)
  1. LUCENTIS [Suspect]
     Indication: AGE-RELATED MACULAR DEGENERATION
     Route: 050
     Dates: start: 20140227
  2. LUCENTIS [Suspect]
     Dosage: SECOND INJECTION
     Route: 050
  3. DORZOLAMIDE [Concomitant]
  4. ALPHAGAN [Concomitant]

REACTIONS (3)
  - Charles Bonnet syndrome [Recovering/Resolving]
  - Fatigue [Recovering/Resolving]
  - Nausea [Recovering/Resolving]
